FAERS Safety Report 8600943-9 (Version None)
Quarter: 2012Q3

REPORT INFORMATION
  Report Type: 
  Country: None (occurrence: None)
  Receive Date: 20120817
  Receipt Date: 20120810
  Transmission Date: 20120928
  Serious: Yes (Hospitalization)
  Sender: FDA-Public Use
  Company Number: AU-SANOFI-AVENTIS-2012SA058754

PATIENT
  Age: 78 Year
  Sex: Female

DRUGS (1)
  1. OXALIPLATIN [Suspect]
     Route: 065

REACTIONS (5)
  - WHEEZING [None]
  - HEADACHE [None]
  - MUSCULAR WEAKNESS [None]
  - EYE HAEMORRHAGE [None]
  - LARYNGOSPASM [None]
